FAERS Safety Report 24230944 (Version 6)
Quarter: 2024Q3

REPORT INFORMATION
  Report Type: Spontaneous
  Country: US (occurrence: US)
  Receive Date: 20240821
  Receipt Date: 20240924
  Transmission Date: 20241017
  Serious: No
  Sender: AMGEN
  Company Number: US-AMGEN-USASP2024162345

PATIENT
  Age: 50 Year
  Sex: Female
  Weight: 72.12 kg

DRUGS (1)
  1. NEULASTA [Suspect]
     Active Substance: PEGFILGRASTIM
     Indication: Prophylaxis
     Dosage: 6 MG/0.6 ML, AFTER CHEMO, POST CHEMOTHERAPY
     Route: 065
     Dates: start: 20240531

REACTIONS (3)
  - Device physical property issue [Unknown]
  - Accidental exposure to product [Unknown]
  - Wrong technique in product usage process [Unknown]

NARRATIVE: CASE EVENT DATE: 20240814
